FAERS Safety Report 19882526 (Version 2)
Quarter: 2021Q3

REPORT INFORMATION
  Report Type: Report from Study
  Country: None (occurrence: US)
  Receive Date: 20210924
  Receipt Date: 20210930
  Transmission Date: 20211014
  Serious: Yes (Life-Threatening)
  Sender: FDA-Public Use
  Company Number: US-ABBVIE-21P-163-4092459-00

PATIENT
  Age: 68 Year
  Sex: Male
  Weight: 109 kg

DRUGS (9)
  1. IBRUTINIB [Suspect]
     Active Substance: IBRUTINIB
     Indication: CHRONIC LYMPHOCYTIC LEUKAEMIA
     Dosage: ON DAYS 1?28, CYCLES 1?19; MOST RECENT DOSE: 08 SEP 2021
     Route: 048
     Dates: start: 20210325
  2. VENETOCLAX. [Suspect]
     Active Substance: VENETOCLAX
     Dosage: DAYS 22?28, CYCLE 3
     Route: 048
  3. OBINUTUZUMAB. [Concomitant]
     Active Substance: OBINUTUZUMAB
     Indication: CHRONIC LYMPHOCYTIC LEUKAEMIA
     Dosage: DAY 1, CYCLE 1
     Route: 042
     Dates: start: 20210325, end: 20210325
  4. OBINUTUZUMAB. [Concomitant]
     Active Substance: OBINUTUZUMAB
     Dosage: DAY 8 AND 15, CYCLE 1; DAY 1, CYCLE 2?6; MOST RECENT DOSE: 12 AUG 2021
     Route: 042
  5. VENETOCLAX. [Suspect]
     Active Substance: VENETOCLAX
     Indication: CHRONIC LYMPHOCYTIC LEUKAEMIA
     Dosage: DAYS 1?7, CYCLE 3
     Route: 048
  6. VENETOCLAX. [Suspect]
     Active Substance: VENETOCLAX
     Dosage: DAYS 1?28, CYCLES 4?14; MOST RECENT DOSE: 08 SEP 2021
     Route: 048
  7. VENETOCLAX. [Suspect]
     Active Substance: VENETOCLAX
     Dosage: DAYS 15?21, CYCLE 3
     Route: 048
  8. OBINUTUZUMAB. [Concomitant]
     Active Substance: OBINUTUZUMAB
     Dosage: DAY 2, CYCLE 1
     Route: 042
  9. VENETOCLAX. [Suspect]
     Active Substance: VENETOCLAX
     Dosage: DAYS 8?14, CYCLE 3
     Route: 048

REACTIONS (1)
  - Neutrophil count decreased [Not Recovered/Not Resolved]

NARRATIVE: CASE EVENT DATE: 20210909
